FAERS Safety Report 8239442-5 (Version None)
Quarter: 2012Q1

REPORT INFORMATION
  Report Type: 
  Country: None (occurrence: None)
  Receive Date: 20120326
  Receipt Date: 20120314
  Transmission Date: 20120608
  Serious: Yes (Other)
  Sender: FDA-Public Use
  Company Number: 2012AP000726

PATIENT
  Age: 64 Year
  Sex: Male

DRUGS (7)
  1. ASPIRIN (ACETYLSALICYLIC ACID) 30NOV2011:28DEC2011 [Concomitant]
  2. ANUSOL /00117301/ (ANUSOL /00117301/) 20DEC2011:UNKNOWN [Concomitant]
  3. METOCLOPRAMIDE (METOCLOPRAMIDE) 03FEB2012:UNKNOWN [Concomitant]
  4. OMEPRAZOLE [Suspect]
     Indication: PRODUCT USED FOR UNKNOWN INDICATION
     Dosage: UNKNOWN UNKNOWN
     Dates: start: 20111014, end: 20111209
  5. OMEPRAZOLE [Suspect]
     Indication: PRODUCT USED FOR UNKNOWN INDICATION
     Dosage: UNKNOWN UNKNOWN
     Dates: start: 20120302
  6. SIMVASTATIN (SIMVASTATIN) 07NOV2011:10FEB2012 [Concomitant]
  7. ESOMEPRAZOLE (ESOMEPRAZOLE) 03FEB2012:02MAR2012 [Concomitant]

REACTIONS (2)
  - PALPITATIONS [None]
  - SUPRAVENTRICULAR EXTRASYSTOLES [None]
